FAERS Safety Report 16361893 (Version 2)
Quarter: 2019Q2

REPORT INFORMATION
  Report Type: Spontaneous
  Country: DK (occurrence: DK)
  Receive Date: 20190528
  Receipt Date: 20190531
  Transmission Date: 20190711
  Serious: Yes (Death, Life-Threatening, Hospitalization, Other)
  Sender: FDA-Public Use
  Company Number: DK-MYLANLABS-2019M1049417

PATIENT
  Age: 26 Year
  Sex: Female

DRUGS (2)
  1. RIVOTRIL [Suspect]
     Active Substance: CLONAZEPAM
     Indication: PRODUCT USED FOR UNKNOWN INDICATION
     Dosage: 0.5 MILLIGRAM
     Route: 065
     Dates: start: 20180318
  2. FLUOXETINE [Suspect]
     Active Substance: FLUOXETINE HYDROCHLORIDE
     Indication: PRODUCT USED FOR UNKNOWN INDICATION
     Dosage: UNK

REACTIONS (28)
  - High-pitched crying [Unknown]
  - Tic [Unknown]
  - Depressed mood [Unknown]
  - Dysstasia [Unknown]
  - Screaming [Unknown]
  - Hyperhidrosis [Unknown]
  - Speech disorder [Unknown]
  - Stomatitis [Unknown]
  - Fatigue [Unknown]
  - Confusional state [Unknown]
  - Diarrhoea [Unknown]
  - Personality change due to a general medical condition [Unknown]
  - Fall [Unknown]
  - Restlessness [Unknown]
  - Dyspnoea [Unknown]
  - Death [Fatal]
  - Excessive eye blinking [Unknown]
  - Intentional self-injury [Unknown]
  - Overdose [Unknown]
  - Insomnia [Unknown]
  - Balance disorder [Unknown]
  - Toxicity to various agents [Fatal]
  - Scratch [Unknown]
  - General physical health deterioration [Unknown]
  - Staring [Unknown]
  - Drug intolerance [Unknown]
  - Tremor [Unknown]
  - Vomiting [Unknown]

NARRATIVE: CASE EVENT DATE: 201805
